FAERS Safety Report 6462492-6 (Version None)
Quarter: 2009Q4

REPORT INFORMATION
  Report Type: 
  Country: None (occurrence: None)
  Receive Date: 20091130
  Receipt Date: 20091118
  Transmission Date: 20100525
  Serious: Yes (Life-Threatening, Hospitalization)
  Sender: FDA-Public Use
  Company Number: FR-BAYER-200940386GPV

PATIENT
  Age: 28 Year
  Sex: Female

DRUGS (2)
  1. YASMIN [Suspect]
     Indication: ORAL CONTRACEPTION
     Route: 048
     Dates: start: 20050101, end: 20091029
  2. ANDROCUR [Suspect]
     Indication: ALOPECIA
     Dosage: D1 TO D10
     Route: 048
     Dates: start: 20040901, end: 20091029

REACTIONS (11)
  - ASTHENIA [None]
  - COR PULMONALE ACUTE [None]
  - DYSPNOEA [None]
  - FEELING HOT [None]
  - MUSCLE TIGHTNESS [None]
  - PAIN IN EXTREMITY [None]
  - PULMONARY EMBOLISM [None]
  - SYNCOPE [None]
  - TACHYCARDIA [None]
  - THROMBOPHLEBITIS [None]
  - VISION BLURRED [None]
